FAERS Safety Report 14709212 (Version 5)
Quarter: 2020Q1

REPORT INFORMATION
  Report Type: Spontaneous
  Country: FR (occurrence: FR)
  Receive Date: 20180403
  Receipt Date: 20200203
  Transmission Date: 20200409
  Serious: Yes (Other)
  Sender: FDA-Public Use
  Company Number: FR-MYLANLABS-2018M1019709

PATIENT
  Age: 69 Year
  Sex: Female

DRUGS (7)
  1. BORTEZOMIB. [Suspect]
     Active Substance: BORTEZOMIB
     Indication: ACUTE KIDNEY INJURY
  2. CYCLOPHOSPHAMIDE. [Suspect]
     Active Substance: CYCLOPHOSPHAMIDE
     Indication: ACUTE KIDNEY INJURY
     Dosage: 750 MG/M2 DAY 1(CYCLE), DAY 1
     Route: 042
     Dates: start: 201211
  3. CYCLOPHOSPHAMIDE. [Suspect]
     Active Substance: CYCLOPHOSPHAMIDE
     Indication: PLASMA CELL MYELOMA
  4. DEXAMETHASONE. [Suspect]
     Active Substance: DEXAMETHASONE
     Dosage: 40 MILLIGRAM, QW
     Route: 048
  5. DEXAMETHASONE. [Suspect]
     Active Substance: DEXAMETHASONE
     Indication: ACUTE KIDNEY INJURY
     Dosage: 20 MG, QW
     Route: 048
     Dates: start: 201211
  6. DEXAMETHASONE. [Suspect]
     Active Substance: DEXAMETHASONE
     Indication: PLASMA CELL MYELOMA
     Dosage: 20 MG, Q2W
     Route: 048
  7. BORTEZOMIB. [Suspect]
     Active Substance: BORTEZOMIB
     Indication: PLASMA CELL MYELOMA
     Dosage: 1.3 MG/M2, 1 CYCLICAL, DAYS 1,4,8,11 IN 21 DAY CYCLE
     Route: 058
     Dates: start: 201211

REACTIONS (7)
  - Human herpes virus 8 test positive [Recovered/Resolved]
  - Human herpesvirus 8 infection [Recovered/Resolved]
  - Papule [Recovered/Resolved]
  - Skin lesion [Recovered/Resolved]
  - Macule [Recovered/Resolved]
  - Kaposi^s sarcoma [Recovered/Resolved]
  - Biopsy skin abnormal [Recovered/Resolved]

NARRATIVE: CASE EVENT DATE: 201302
